FAERS Safety Report 9665676 (Version 2)
Quarter: 2013Q4

REPORT INFORMATION
  Report Type: Spontaneous
  Country: US (occurrence: US)
  Receive Date: 20131104
  Receipt Date: 20131113
  Transmission Date: 20140711
  Serious: Yes (Other)
  Sender: FDA-Public Use
  Company Number: PHEH2013US022743

PATIENT
  Age: 51 Year
  Sex: Female

DRUGS (5)
  1. EXFORGE [Suspect]
     Dosage: UNK UKN, UNK
     Dates: end: 20131003
  2. EXFORGE [Suspect]
     Dosage: UNK UKN, UNK
     Dates: end: 20131003
  3. LOSARTAN [Suspect]
     Dosage: 100 MG, UNK
     Dates: start: 20131003
  4. CLONIDINE [Suspect]
     Dosage: 0.1 MG, BID
  5. METOPROLOL [Suspect]
     Dosage: 25 MG, UNK

REACTIONS (10)
  - Diabetes mellitus [Unknown]
  - Transient ischaemic attack [Unknown]
  - Loss of consciousness [Unknown]
  - Gastric ulcer [Unknown]
  - Blood pressure inadequately controlled [Unknown]
  - Feeling abnormal [Unknown]
  - Pain in extremity [Unknown]
  - Malaise [Unknown]
  - Dyspnoea [Unknown]
  - Vomiting [Unknown]
